FAERS Safety Report 11022810 (Version 1)
Quarter: 2015Q2

REPORT INFORMATION
  Report Type: Spontaneous
  Country: US (occurrence: US)
  Receive Date: 20150413
  Receipt Date: 20150413
  Transmission Date: 20150821
  Serious: No
  Sender: FDA-Public Use
  Company Number: US-TEVA-553938ACC

PATIENT
  Sex: Female

DRUGS (4)
  1. PLAN B ONE-STEP [Suspect]
     Active Substance: LEVONORGESTREL
     Indication: POST COITAL CONTRACEPTION
     Dosage: 1.5 MILLIGRAM DAILY;
     Route: 048
     Dates: start: 20150405, end: 20150405
  2. DEPAKOTE [Concomitant]
     Active Substance: DIVALPROEX SODIUM
  3. DILANTIN [Concomitant]
     Active Substance: PHENYTOIN
     Indication: SEIZURE
  4. PLAN B ONE-STEP [Suspect]
     Active Substance: LEVONORGESTREL
     Indication: POST COITAL CONTRACEPTION
     Dosage: 1.5 MILLIGRAM DAILY;
     Route: 048
     Dates: start: 20150405, end: 20150405

REACTIONS (4)
  - Off label use [Unknown]
  - Abdominal pain upper [Not Recovered/Not Resolved]
  - Pollakiuria [Not Recovered/Not Resolved]
  - Drug prescribing error [Unknown]

NARRATIVE: CASE EVENT DATE: 20150405
